FAERS Safety Report 8909671 (Version 1)
Quarter: 2012Q4

REPORT INFORMATION
  Report Type: 
  Country: FR (occurrence: FR)
  Receive Date: 20121115
  Receipt Date: 20121115
  Transmission Date: 20130627
  Serious: Yes (Other)
  Sender: FDA-Public Use
  Company Number: FR-ROCHE-1155566

PATIENT
  Sex: Female

DRUGS (5)
  1. MABTHERA [Suspect]
     Indication: LYMPHOMA
     Route: 050
  2. CYCLOPHOSPHAMIDE [Suspect]
     Indication: LYMPHOMA
     Route: 050
  3. VINCRISTINE [Suspect]
     Indication: LYMPHOMA
     Route: 050
  4. DOXORUBICIN [Suspect]
     Indication: LYMPHOMA
     Route: 050
  5. PREDNISOLONE [Suspect]
     Indication: LYMPHOMA
     Route: 050

REACTIONS (1)
  - Depression [Unknown]
